FAERS Safety Report 5871475-6 (Version None)
Quarter: 2008Q3

REPORT INFORMATION
  Report Type: 
  Country: None (occurrence: None)
  Receive Date: 20080905
  Receipt Date: 20080211
  Transmission Date: 20090109
  Serious: No
  Sender: FDA-Public Use
  Company Number: A0708691A

PATIENT
  Sex: Female

DRUGS (4)
  1. REQUIP [Suspect]
     Indication: RESTLESS LEGS SYNDROME
     Dosage: .5MG AT NIGHT
     Route: 048
     Dates: start: 20080101, end: 20080206
  2. LASIX [Concomitant]
  3. METFORMIN HCL [Concomitant]
  4. ACTOS [Concomitant]

REACTIONS (1)
  - OEDEMA PERIPHERAL [None]
